FAERS Safety Report 5930312-1 (Version None)
Quarter: 2008Q4

REPORT INFORMATION
  Report Type: 
  Country: None (occurrence: None)
  Receive Date: 20081024
  Receipt Date: 20081017
  Transmission Date: 20090506
  Serious: Yes (Death, Hospitalization)
  Sender: FDA-Public Use
  Company Number: JP-MERCK-0810USA03878

PATIENT
  Age: 91 Year
  Sex: Female
  Weight: 45 kg

DRUGS (5)
  1. STROMECTOL [Suspect]
     Indication: ACARODERMATITIS
     Route: 048
     Dates: start: 20080712, end: 20080712
  2. STROMECTOL [Suspect]
     Route: 048
     Dates: start: 20080719, end: 20080719
  3. CRAVIT [Concomitant]
     Indication: URINARY TRACT INFECTION
     Route: 048
  4. LASIX [Concomitant]
     Indication: URINARY TRACT INFECTION
     Route: 065
  5. ORACEF [Concomitant]
     Indication: URINARY TRACT INFECTION
     Route: 048

REACTIONS (2)
  - MYOCARDIAL INFARCTION [None]
  - OVERDOSE [None]
